FAERS Safety Report 5064272-5 (Version None)
Quarter: 2006Q3

REPORT INFORMATION
  Report Type: 
  Country: None (occurrence: None)
  Receive Date: 20060726
  Receipt Date: 20060726
  Transmission Date: 20061208
  Serious: Yes (Life-Threatening)
  Sender: FDA-Public Use
  Company Number: None

PATIENT
  Sex: Female
  Weight: 64 kg

DRUGS (3)
  1. BENZOCAINE [Suspect]
     Indication: ANAESTHESIA
     Dosage: 3 SPRAYS PROCEDURE TOP
     Route: 061
     Dates: start: 20060724, end: 20060724
  2. MIDAZOLAM HYDROCHLORIDE [Concomitant]
  3. FENTANYL [Concomitant]

REACTIONS (4)
  - BLOOD PRESSURE DIASTOLIC DECREASED [None]
  - DRUG HYPERSENSITIVITY [None]
  - METHAEMOGLOBINAEMIA [None]
  - OXYGEN SATURATION DECREASED [None]
